FAERS Safety Report 6682039-9 (Version None)
Quarter: 2010Q2

REPORT INFORMATION
  Report Type: 
  Country: None (occurrence: None)
  Receive Date: 20100414
  Receipt Date: 20100414
  Transmission Date: 20101027
  Serious: Yes (Other)
  Sender: FDA-Public Use
  Company Number: None

PATIENT
  Age: 33 Year
  Sex: Female
  Weight: 55.3388 kg

DRUGS (3)
  1. AMITIZA [Suspect]
     Indication: CONSTIPATION
     Dosage: 24MCG TWICE DAILY PO
     Route: 048
     Dates: start: 20070219, end: 20070331
  2. AMITIZA [Suspect]
     Indication: IRRITABLE BOWEL SYNDROME
     Dosage: 24MCG TWICE DAILY PO
     Route: 048
     Dates: start: 20070219, end: 20070331
  3. ZELNORM [Suspect]

REACTIONS (2)
  - HEADACHE [None]
  - MIGRAINE [None]
